FAERS Safety Report 8583416-1 (Version None)
Quarter: 2012Q3

REPORT INFORMATION
  Report Type: 
  Country: None (occurrence: None)
  Receive Date: 20120809
  Receipt Date: 20120726
  Transmission Date: 20120928
  Serious: Yes (Disabling)
  Sender: FDA-Public Use
  Company Number: CHPA2012CA016772

PATIENT
  Age: 44 Year
  Sex: Female
  Weight: 57.596 kg

DRUGS (1)
  1. TRANSDERM VOYAGER [Suspect]
     Indication: INNER EAR DISORDER
     Dosage: UNK, UNK
     Route: 062
     Dates: start: 20120401, end: 20120627

REACTIONS (17)
  - WEIGHT DECREASED [None]
  - WITHDRAWAL SYNDROME [None]
  - HYPERHIDROSIS [None]
  - APPLICATION SITE PRURITUS [None]
  - VOMITING [None]
  - NAUSEA [None]
  - OFF LABEL USE [None]
  - DRY MOUTH [None]
  - MALAISE [None]
  - CHILLS [None]
  - MYDRIASIS [None]
  - DEHYDRATION [None]
  - VISION BLURRED [None]
  - APPLICATION SITE ERYTHEMA [None]
  - APPLICATION SITE SWELLING [None]
  - PHOTOPSIA [None]
  - HEADACHE [None]
